FAERS Safety Report 20582637 (Version 1)
Quarter: 2022Q1

REPORT INFORMATION
  Report Type: Spontaneous
  Country: CA (occurrence: CA)
  Receive Date: 20220311
  Receipt Date: 20220311
  Transmission Date: 20220423
  Serious: Yes (Life-Threatening, Hospitalization)
  Sender: FDA-Public Use
  Company Number: None

PATIENT
  Age: 67 Year
  Sex: Female
  Weight: 108 kg

DRUGS (14)
  1. CISPLATIN [Suspect]
     Active Substance: CISPLATIN
     Indication: Metastases to ovary
     Dosage: INJECTION
     Route: 042
  2. ETOPOSIDE [Suspect]
     Active Substance: ETOPOSIDE
     Indication: Product used for unknown indication
     Route: 042
  3. CANDESARTAN [Concomitant]
     Active Substance: CANDESARTAN
  4. DIMENHYDRINATE [Concomitant]
     Active Substance: DIMENHYDRINATE
  5. FUROSEMIDE [Concomitant]
     Active Substance: FUROSEMIDE
     Route: 065
  6. HYDROMORPHONE [Concomitant]
     Active Substance: HYDROMORPHONE
  7. LORAZEPAM [Concomitant]
     Active Substance: LORAZEPAM
  8. MAGNESIUM OXIDE [Concomitant]
     Active Substance: MAGNESIUM OXIDE
  9. METOCLOPRAMIDE [Concomitant]
     Active Substance: METOCLOPRAMIDE
  10. NYSTATIN [Concomitant]
     Active Substance: NYSTATIN
  11. ONDANSETRON [Concomitant]
     Active Substance: ONDANSETRON
  12. POTASSIUM CHLORIDE [Concomitant]
     Active Substance: POTASSIUM CHLORIDE
  13. ROSUVASTATIN [Concomitant]
     Active Substance: ROSUVASTATIN
     Route: 058
  14. TYLENOL [Concomitant]
     Active Substance: ACETAMINOPHEN

REACTIONS (3)
  - Vomiting [Recovered/Resolved]
  - Dehydration [Recovered/Resolved]
  - Nausea [Recovered/Resolved]
